FAERS Safety Report 7226958-3 (Version None)
Quarter: 2011Q1

REPORT INFORMATION
  Report Type: 
  Country: None (occurrence: None)
  Receive Date: 20110114
  Receipt Date: 20110106
  Transmission Date: 20110831
  Serious: Yes (Other)
  Sender: FDA-Public Use
  Company Number: NL-JNJFOC-20110101429

PATIENT
  Age: 85 Year
  Sex: Male

DRUGS (2)
  1. INFLUENZA VACCINE [Suspect]
     Indication: PRODUCT USED FOR UNKNOWN INDICATION
     Route: 065
  2. HALDOL [Suspect]
     Indication: PRODUCT USED FOR UNKNOWN INDICATION
     Dosage: 2 MG/ ML
     Route: 048

REACTIONS (4)
  - PSYCHOTIC DISORDER [None]
  - HYPERSENSITIVITY [None]
  - INJECTION SITE SWELLING [None]
  - DELUSION [None]
